FAERS Safety Report 4382486-4 (Version None)
Quarter: 2004Q2

REPORT INFORMATION
  Report Type: 
  Country: None (occurrence: None)
  Receive Date: 20040617
  Receipt Date: 20040608
  Transmission Date: 20050107
  Serious: Yes (Hospitalization)
  Sender: FDA-Public Use
  Company Number: DEWYE047706MAR03

PATIENT
  Age: 68 Year
  Sex: Female

DRUGS (9)
  1. SIROLIMUS (SIROLIMUS, TABLET, 0) [Suspect]
     Indication: RENAL TRANSPLANT
     Dosage: 2.5 MG 1X PER 1 DAY ORAL
     Route: 048
     Dates: start: 20021129
  2. AMPHOTERICIN B [Concomitant]
  3. COTRIM FORTE-RATIOPHARM (SULFAMETHOXAZOLE/TRIMETHOPRIM) [Concomitant]
  4. LEVOTHYROXINE SODIUM [Concomitant]
  5. PANTOZOL (PANTOPRAZOLE SODIUM) [Concomitant]
  6. METOPROLOL SUCCINATE [Concomitant]
  7. FUROSEMIDE [Concomitant]
  8. POTASSIUM (POTASSIUM) [Concomitant]
  9. NORVASC [Concomitant]

REACTIONS (1)
  - DIVERTICULITIS [None]
